FAERS Safety Report 8602762 (Version 1)
Quarter: 2012Q4

REPORT INFORMATION
  Report Type: 
  Country: US (occurrence: US)
  Receive Date: 20120911
  Receipt Date: 20120911
  Transmission Date: 20130627
  Serious: No
  Sender: FDA-Public Use
  Company Number: US-ASTRAZENECA-2012SE35133

PATIENT
  Sex: Female

DRUGS (3)
  1. NEXIUM [Suspect]
     Indication: GASTROOESOPHAGEAL REFLUX DISEASE
     Dosage: 40 MG BID, EVERY OTHER DAY
     Route: 048
     Dates: start: 2002
  2. NEXIUM [Suspect]
     Indication: GASTROOESOPHAGEAL REFLUX DISEASE
     Dosage: 40 MG, QD, EVERY OTHER DAY
     Route: 048
  3. PRILOSEC [Suspect]
     Indication: GASTROOESOPHAGEAL REFLUX DISEASE
     Route: 048

REACTIONS (9)
  - Adverse event [Unknown]
  - Gastritis [Unknown]
  - Chest discomfort [Unknown]
  - Eructation [Unknown]
  - Dyspepsia [Unknown]
  - Nausea [Unknown]
  - Epigastric discomfort [Unknown]
  - Off label use [Unknown]
  - Drug ineffective [Unknown]
